FAERS Safety Report 4537562-X (Version None)
Quarter: 2004Q4

REPORT INFORMATION
  Report Type: 
  Country: None (occurrence: None)
  Receive Date: 20041221
  Receipt Date: 20040825
  Transmission Date: 20050328
  Serious: No
  Sender: FDA-Public Use
  Company Number: A-US2004-07213

PATIENT
  Age: 57 Year
  Sex: Male

DRUGS (3)
  1. TRACLEER [Suspect]
     Indication: PULMONARY HYPERTENSION
     Dosage: ORAL
     Route: 048
  2. WELLBUTRIN (AMFEBUTAMONE HYDROCHLORIED) [Concomitant]
  3. LEVAQUIN [Concomitant]

REACTIONS (2)
  - OEDEMA PERIPHERAL [None]
  - VEIN DISORDER [None]
